FAERS Safety Report 5107467-4 (Version None)
Quarter: 2006Q3

REPORT INFORMATION
  Report Type: 
  Country: None (occurrence: None)
  Receive Date: 20060731
  Receipt Date: 20060401
  Transmission Date: 20061208
  Serious: No
  Sender: FDA-Public Use
  Company Number: 2006PV011319

PATIENT
  Age: 63 Year
  Sex: Female
  Weight: 123.3784 kg

DRUGS (5)
  1. BYETTA [Suspect]
     Indication: DIABETES MELLITUS NON-INSULIN-DEPENDENT
     Dosage: 5 MCG;BID;SC
     Route: 058
     Dates: start: 20060228
  2. GLUCOPHAGE [Concomitant]
  3. AVANDIA [Concomitant]
  4. GLUCOTROL [Concomitant]
  5. CORRECTOL [Concomitant]

REACTIONS (4)
  - FAECES DISCOLOURED [None]
  - FLATULENCE [None]
  - URINARY TRACT INFECTION [None]
  - WEIGHT DECREASED [None]
